FAERS Safety Report 9139125 (Version 1)
Quarter: 2013Q1

REPORT INFORMATION
  Report Type: Report from Study
  Country: US (occurrence: US)
  Receive Date: 20130305
  Receipt Date: 20130305
  Transmission Date: 20140127
  Serious: No
  Sender: FDA-Public Use
  Company Number: US-VERTEX PHARMACEUTICALS INC.-2013-002724

PATIENT
  Age: 43 Year
  Sex: Female

DRUGS (1)
  1. INCIVEK [Suspect]
     Indication: HEPATITIS C
     Route: 065

REACTIONS (4)
  - Anxiety [Unknown]
  - Diarrhoea [Unknown]
  - Abdominal distension [Unknown]
  - Decreased appetite [Unknown]
